FAERS Safety Report 5511930-1 (Version None)
Quarter: 2007Q4

REPORT INFORMATION
  Report Type: 
  Country: None (occurrence: None)
  Receive Date: 20071109
  Receipt Date: 20071029
  Transmission Date: 20080405
  Serious: Yes (Hospitalization)
  Sender: FDA-Public Use
  Company Number: DE-PFIZER INC-2007091833

PATIENT
  Age: 59 Year
  Sex: Female

DRUGS (3)
  1. SORTIS [Suspect]
     Indication: PROPHYLAXIS
     Dosage: DAILY DOSE:20MG
     Route: 048
  2. LEVOTHYROXINE SODIUM [Concomitant]
  3. HARPAGOPHYTUM PROCUMBENS [Concomitant]

REACTIONS (2)
  - MYALGIA [None]
  - OSTEOARTHRITIS [None]
